FAERS Safety Report 6802791-9 (Version None)
Quarter: 2010Q2

REPORT INFORMATION
  Report Type: 
  Country: None (occurrence: None)
  Receive Date: 20100628
  Receipt Date: 20100614
  Transmission Date: 20101027
  Serious: Yes (Hospitalization)
  Sender: FDA-Public Use
  Company Number: PHHY2010FR39036

PATIENT
  Sex: Male

DRUGS (5)
  1. AREDIA [Suspect]
     Indication: EXOSTOSIS
     Dosage: 90 MG DILUTED TO 500 ML
  2. PREVISCAN [Concomitant]
  3. GLUCOPHAGE [Concomitant]
  4. NOVONORM [Concomitant]
  5. TAHOR [Concomitant]

REACTIONS (7)
  - ACUTE PULMONARY OEDEMA [None]
  - BLOOD PRESSURE INCREASED [None]
  - BRAIN NATRIURETIC PEPTIDE INCREASED [None]
  - DYSPNOEA [None]
  - HYPERTENSION [None]
  - RALES [None]
  - TACHYPNOEA [None]
